FAERS Safety Report 25863626 (Version 1)
Quarter: 2025Q3

REPORT INFORMATION
  Report Type: Report from Study
  Country: EU (occurrence: EU)
  Receive Date: 20250930
  Receipt Date: 20250930
  Transmission Date: 20251021
  Serious: Yes (Hospitalization, Disabling, Other)
  Sender: ASTELLAS
  Company Number: None

PATIENT

DRUGS (8)
  1. TACROLIMUS [Suspect]
     Active Substance: TACROLIMUS
     Indication: Renal transplant
     Dosage: 6 MG, ONCE DAILY
     Route: 065
     Dates: start: 20150125
  2. TACROLIMUS [Suspect]
     Active Substance: TACROLIMUS
     Indication: Immunosuppressant drug therapy
     Dosage: 6 MG, ONCE DAILY
     Route: 065
     Dates: start: 20150125, end: 20160209
  3. CELLCEPT [Suspect]
     Active Substance: MYCOPHENOLATE MOFETIL
     Indication: Renal transplant
     Dosage: 2000 MG, ONCE DAILY
     Route: 065
     Dates: start: 20150125
  4. CELLCEPT [Suspect]
     Active Substance: MYCOPHENOLATE MOFETIL
     Indication: Immunosuppressant drug therapy
  5. METHYLPREDNISOLONE [Suspect]
     Active Substance: METHYLPREDNISOLONE
     Indication: Renal transplant
     Dosage: 40 MG, ONCE DAILY
     Route: 065
     Dates: start: 20150125
  6. METHYLPREDNISOLONE [Suspect]
     Active Substance: METHYLPREDNISOLONE
     Indication: Immunosuppressant drug therapy
  7. ULCOPROL [Concomitant]
     Indication: Gastrointestinal disorder
     Dosage: 40 MG, ONCE DAILY
     Route: 048
     Dates: start: 20150125
  8. ULCOPROL [Concomitant]
     Indication: Prophylaxis

REACTIONS (3)
  - Sepsis [Recovering/Resolving]
  - Transplant rejection [Not Recovered/Not Resolved]
  - Lymphocele [Not Recovered/Not Resolved]

NARRATIVE: CASE EVENT DATE: 20150209
